FAERS Safety Report 15225813 (Version 10)
Quarter: 2019Q3

REPORT INFORMATION
  Report Type: Spontaneous
  Country: US (occurrence: US)
  Receive Date: 20180801
  Receipt Date: 20190816
  Transmission Date: 20191004
  Serious: No
  Sender: FDA-Public Use
  Company Number: US-PFIZER INC-2018306542

PATIENT
  Age: 71 Year
  Sex: Male

DRUGS (3)
  1. BOSULIF [Suspect]
     Active Substance: BOSUTINIB MONOHYDRATE
     Dosage: 400 MG, DAILY
     Dates: start: 20180713
  2. BOSULIF [Suspect]
     Active Substance: BOSUTINIB MONOHYDRATE
     Indication: CHRONIC MYELOID LEUKAEMIA
     Dosage: 300 MG, 1X/DAY
     Route: 048
     Dates: start: 20180713, end: 201807
  3. BOSULIF [Suspect]
     Active Substance: BOSUTINIB MONOHYDRATE
     Dosage: 100 MG, DAILY
     Route: 048
     Dates: start: 20180725, end: 2018

REACTIONS (18)
  - Feeling cold [Unknown]
  - Constipation [Recovered/Resolved]
  - Diarrhoea [Unknown]
  - Fatigue [Unknown]
  - Abdominal discomfort [Unknown]
  - Musculoskeletal pain [Unknown]
  - Taste disorder [Unknown]
  - Muscular weakness [Unknown]
  - Abdominal pain upper [Unknown]
  - Pyrexia [Unknown]
  - Muscle spasms [Unknown]
  - White blood cell count increased [Recovering/Resolving]
  - Asthenia [Unknown]
  - Nausea [Unknown]
  - Sinus disorder [Unknown]
  - Headache [Unknown]
  - Sinusitis [Unknown]
  - Anaemia [Unknown]

NARRATIVE: CASE EVENT DATE: 2018
